FAERS Safety Report 17834523 (Version 6)
Quarter: 2023Q4

REPORT INFORMATION
  Report Type: Spontaneous
  Country: US (occurrence: US)
  Receive Date: 20200528
  Receipt Date: 20231228
  Transmission Date: 20240110
  Serious: Yes (Other)
  Sender: FDA-Public Use
  Company Number: US-PFIZER INC-2020208700

PATIENT
  Age: 59 Year
  Sex: Female
  Weight: 69.4 kg

DRUGS (2)
  1. ESTRING [Suspect]
     Active Substance: ESTRADIOL
     Indication: Vulvovaginal dryness
     Dosage: UNK, EVERY 3 MONTHS (RING TO BE INSERTED VAGINALLY EVERY 3 MONTHS)
     Route: 067
     Dates: end: 20200522
  2. ESTRING [Suspect]
     Active Substance: ESTRADIOL
     Indication: Atrophic vulvovaginitis
     Dosage: 7.5MCG PER DAY

REACTIONS (9)
  - Drug ineffective [Recovered/Resolved]
  - Skin laceration [Recovered/Resolved]
  - Vaginal haemorrhage [Recovered/Resolved]
  - Vulvovaginal pain [Recovered/Resolved]
  - Condition aggravated [Recovered/Resolved]
  - Burning sensation [Recovered/Resolved]
  - Pruritus [Recovered/Resolved]
  - Infection [Unknown]
  - Erythema [Unknown]

NARRATIVE: CASE EVENT DATE: 20190101
